FAERS Safety Report 12728265 (Version 1)
Quarter: 2016Q3

REPORT INFORMATION
  Report Type: Spontaneous
  Country: US (occurrence: US)
  Receive Date: 20160909
  Receipt Date: 20160909
  Transmission Date: 20161109
  Serious: Yes (Hospitalization)
  Sender: FDA-Public Use
  Company Number: None

PATIENT
  Age: 44 Year
  Sex: Female

DRUGS (6)
  1. VENOLIN [Concomitant]
  2. BACLOFEN. [Concomitant]
     Active Substance: BACLOFEN
  3. GABAPENTIN. [Concomitant]
     Active Substance: GABAPENTIN
  4. FLONASE [Concomitant]
     Active Substance: FLUTICASONE PROPIONATE
  5. GILENYA [Suspect]
     Active Substance: FINGOLIMOD HYDROCHLORIDE
     Indication: MULTIPLE SCLEROSIS
     Route: 048
     Dates: start: 20151028
  6. OXYBUTYNIN [Concomitant]
     Active Substance: OXYBUTYNIN

REACTIONS (1)
  - Hospitalisation [None]

NARRATIVE: CASE EVENT DATE: 2016
